FAERS Safety Report 6932938-5 (Version None)
Quarter: 2010Q3

REPORT INFORMATION
  Report Type: 
  Country: None (occurrence: None)
  Receive Date: 20100817
  Receipt Date: 20100802
  Transmission Date: 20110219
  Serious: Yes (Hospitalization, Other)
  Sender: FDA-Public Use
  Company Number: 2009AC000345

PATIENT
  Age: 72 Year
  Sex: Male
  Weight: 117.9352 kg

DRUGS (55)
  1. DIGOXIN [Suspect]
     Dosage: 0.25 MG;QD;PO
     Route: 048
     Dates: start: 20030604, end: 20080501
  2. DIGOXIN [Suspect]
     Dosage: 0.125 MG;QD;PO
     Route: 048
     Dates: start: 20080501, end: 20080608
  3. DIGOXIN [Suspect]
     Dosage: 0.25 MG;QD;PO
     Route: 048
     Dates: start: 20080609
  4. COZAAR [Concomitant]
  5. METOPROLOL [Concomitant]
  6. VICODIN [Concomitant]
  7. XALATAN [Concomitant]
  8. TIMOLOL [Concomitant]
  9. PRAVACHOL [Concomitant]
  10. POTASSIUM [Concomitant]
  11. LASIX [Concomitant]
  12. COUMADIN [Concomitant]
  13. GLYBURIDE [Concomitant]
  14. TAMBOCOR [Concomitant]
  15. MAXZIDE [Concomitant]
  16. DARVOCET [Concomitant]
  17. PROSCAR [Concomitant]
  18. HYDROCODONE BITARTRATE [Concomitant]
  19. PLAVIX [Concomitant]
  20. NITROSTAT [Concomitant]
  21. FLECAINIDE ACETATE [Concomitant]
  22. ZOLOFT [Concomitant]
  23. TRENTAL [Concomitant]
  24. TRICOR [Concomitant]
  25. LEXAPRO [Concomitant]
  26. FOLTX [Concomitant]
  27. PREVACID [Concomitant]
  28. XANAX [Concomitant]
  29. METANX [Concomitant]
  30. CHELATION [Concomitant]
  31. IBUPROFEN [Concomitant]
  32. ACETAMINOPHEN [Concomitant]
  33. PLAVIX [Concomitant]
  34. ASPIRIN [Concomitant]
  35. POTASSIUM [Concomitant]
  36. COUMADIN [Concomitant]
  37. MULTI-VITAMIN [Concomitant]
  38. LASIX [Concomitant]
  39. WARFARIN SODIUM [Concomitant]
  40. HYDROCHLOROTHIAZIDE [Concomitant]
  41. FLECAINIDE ACETATE [Concomitant]
  42. METOPROLOL [Concomitant]
  43. COZAAR [Concomitant]
  44. GLYBURIDE [Concomitant]
  45. TIMOLOL [Concomitant]
  46. PRAVACHOL [Concomitant]
  47. PROSCAR [Concomitant]
  48. PENTOXIFYLLI [Concomitant]
  49. XALATAN [Concomitant]
  50. HYDROCODONE BITARTRATE AND ACETAMINOPHEN [Concomitant]
  51. TRICOR [Concomitant]
  52. ASPIRIN [Concomitant]
  53. MULTI-VITAMINS [Concomitant]
  54. TRIAMTERENE AND HYDROCHLOROTHIAZIDE [Concomitant]
  55. FINASTERIDE [Concomitant]

REACTIONS (48)
  - ANGINA PECTORIS [None]
  - ANHEDONIA [None]
  - ANXIETY [None]
  - ARTERIOSCLEROSIS CORONARY ARTERY [None]
  - ARTHRALGIA [None]
  - ASTHENIA [None]
  - ATRIAL FIBRILLATION [None]
  - BALANCE DISORDER [None]
  - BLOOD GLUCOSE INCREASED [None]
  - BRAIN NATRIURETIC PEPTIDE INCREASED [None]
  - CARDIAC FAILURE CONGESTIVE [None]
  - CARDIAC MURMUR [None]
  - CARDIOMEGALY [None]
  - COLONIC POLYP [None]
  - DEPRESSION [None]
  - DIABETIC NEUROPATHY [None]
  - DIASTOLIC DYSFUNCTION [None]
  - DIZZINESS [None]
  - DRUG PRESCRIBING ERROR [None]
  - DRUG TOXICITY [None]
  - DYSPNOEA [None]
  - EJECTION FRACTION DECREASED [None]
  - ELECTROCARDIOGRAM ABNORMAL [None]
  - FEELING ABNORMAL [None]
  - GLAUCOMA [None]
  - HAEMATOMA [None]
  - INFLUENZA LIKE ILLNESS [None]
  - INJURY [None]
  - INTERNATIONAL NORMALISED RATIO INCREASED [None]
  - IRON DEFICIENCY ANAEMIA [None]
  - JOINT SWELLING [None]
  - LEFT ATRIAL DILATATION [None]
  - MALAISE [None]
  - NAUSEA [None]
  - OEDEMA PERIPHERAL [None]
  - OVERDOSE [None]
  - OXYGEN SATURATION DECREASED [None]
  - PAIN [None]
  - PAIN IN EXTREMITY [None]
  - PROTHROMBIN TIME PROLONGED [None]
  - QUALITY OF LIFE DECREASED [None]
  - RIGHT ATRIAL DILATATION [None]
  - SCAN MYOCARDIAL PERFUSION ABNORMAL [None]
  - SCROTAL HAEMATOCOELE [None]
  - SCROTAL VARICOSE VEINS [None]
  - SPLENOMEGALY [None]
  - THROMBOCYTOPENIA [None]
  - VENTRICULAR HYPERTROPHY [None]
